FAERS Safety Report 10408705 (Version 2)
Quarter: 2014Q3

REPORT INFORMATION
  Report Type: Spontaneous
  Country: US (occurrence: US)
  Receive Date: 20140826
  Receipt Date: 20140901
  Transmission Date: 20150326
  Serious: Yes (Hospitalization)
  Sender: FDA-Public Use
  Company Number: US-UNITED THERAPEUTICS-UNT-2014-006113

PATIENT
  Age: 45 Year
  Sex: Female
  Weight: 50.79 kg

DRUGS (1)
  1. REMODULIN [Suspect]
     Active Substance: TREPROSTINIL
     Indication: COR PULMONALE CHRONIC
     Dosage: 0.066 ?G/KG, CONTINUING
     Route: 058
     Dates: start: 20090606

REACTIONS (2)
  - Fluid retention [Unknown]
  - Renal disorder [Unknown]

NARRATIVE: CASE EVENT DATE: 201408
